FAERS Safety Report 19269970 (Version 5)
Quarter: 2021Q3

REPORT INFORMATION
  Report Type: Spontaneous
  Country: JP (occurrence: JP)
  Receive Date: 20210518
  Receipt Date: 20210817
  Transmission Date: 20211014
  Serious: Yes (Other)
  Sender: FDA-Public Use
  Company Number: JP-BRISTOL-MYERS SQUIBB COMPANY-BMS-2021-047585

PATIENT
  Age: 78 Year
  Sex: Male

DRUGS (4)
  1. YERVOY [Suspect]
     Active Substance: IPILIMUMAB
     Dosage: UNK UNK, ONE TIME DOSE
     Route: 065
  2. OPDIVO [Suspect]
     Active Substance: NIVOLUMAB
     Indication: METASTATIC RENAL CELL CARCINOMA
     Dosage: UNK UNK, ONE TIME DOSE
     Route: 041
     Dates: start: 20181127, end: 20181127
  3. YERVOY [Suspect]
     Active Substance: IPILIMUMAB
     Indication: METASTATIC RENAL CELL CARCINOMA
     Dosage: UNK UNK, ONE TIME DOSE
     Route: 041
     Dates: start: 20181127, end: 20181127
  4. OPDIVO [Suspect]
     Active Substance: NIVOLUMAB
     Dosage: UNK UNK, ONE TIME DOSE
     Route: 065

REACTIONS (3)
  - Fall [Unknown]
  - Subdural haematoma [Unknown]
  - Injury [Unknown]
